FAERS Safety Report 21466059 (Version 2)
Quarter: 2022Q4

REPORT INFORMATION
  Report Type: Report from Study
  Country: US (occurrence: US)
  Receive Date: 20221017
  Receipt Date: 20221116
  Transmission Date: 20230113
  Serious: No
  Sender: FDA-Public Use
  Company Number: US-ABBVIE-4142598

PATIENT
  Sex: Female

DRUGS (1)
  1. RINVOQ [Suspect]
     Active Substance: UPADACITINIB
     Indication: Asthma
     Dosage: FORM STRENGTH: 15 MILLIGRAM EXTENDED RELEASE?15 MG ER TAB?FREQUENCY TEXT: EACH DAY
     Route: 048

REACTIONS (2)
  - COVID-19 [Recovered/Resolved]
  - Upper respiratory tract infection [Recovering/Resolving]
